FAERS Safety Report 7046351-6 (Version None)
Quarter: 2010Q4

REPORT INFORMATION
  Report Type: 
  Country: None (occurrence: None)
  Receive Date: 20101014
  Receipt Date: 20101007
  Transmission Date: 20110411
  Serious: Yes (Life-Threatening, Hospitalization, Other)
  Sender: FDA-Public Use
  Company Number: JP-PFIZER INC-2010113124

PATIENT
  Age: 59 Year
  Sex: Female
  Weight: 50 kg

DRUGS (10)
  1. SOLU-MEDROL [Suspect]
     Indication: EOSINOPHILIC PNEUMONIA
     Dosage: 1 G, 2X/DAY
     Dates: start: 20091013, end: 20091023
  2. ADONA [Suspect]
     Indication: HAEMORRHAGE
     Dosage: 50 MG, 1X/DAY
     Dates: start: 20091013, end: 20091013
  3. SULBACTAM SODIUM [Concomitant]
     Indication: INFECTION
     Dosage: 3 G, 2X/DAY
     Dates: start: 20091012, end: 20091016
  4. CIPROFLOXACIN HCL [Concomitant]
     Indication: INFECTION
     Dosage: 600 MG, 2X/DAY
     Dates: start: 20091012, end: 20091013
  5. ELASPOL [Concomitant]
     Indication: LUNG DISORDER
     Dosage: 100 MG, 1X/DAY
     Dates: start: 20091014, end: 20091025
  6. ELASPOL [Concomitant]
     Indication: HYPOVENTILATION
  7. FAMOTIDINE [Concomitant]
     Indication: GASTRITIS
     Dosage: 20 MG, 1X/DAY
     Dates: start: 20091015, end: 20091018
  8. MEDICONE [Concomitant]
     Indication: COUGH
     Dosage: 45 MG, 3X/DAY
     Dates: start: 20091012, end: 20091014
  9. PARIET [Concomitant]
     Indication: GASTRITIS
     Dosage: 10 MG, 1X/DAY
     Dates: start: 20091014, end: 20091015
  10. BAKTAR [Concomitant]
     Indication: INFECTION
     Dosage: UNK
     Route: 048
     Dates: start: 20091014, end: 20091015

REACTIONS (2)
  - PULMONARY EMBOLISM [None]
  - THROMBOSIS [None]
